FAERS Safety Report 23447522 (Version 9)
Quarter: 2024Q3

REPORT INFORMATION
  Report Type: Report from Study
  Country: FR (occurrence: FR)
  Receive Date: 20240126
  Receipt Date: 20240927
  Transmission Date: 20241017
  Serious: Yes (Hospitalization)
  Sender: EISAI
  Company Number: FR-Eisai-EC-2023-155756

PATIENT
  Age: 58 Year
  Sex: Female

DRUGS (10)
  1. LENVATINIB [Suspect]
     Active Substance: LENVATINIB
     Indication: Thymic carcinoma
     Route: 048
     Dates: start: 20231204, end: 20240131
  2. LENVATINIB [Suspect]
     Active Substance: LENVATINIB
     Route: 048
     Dates: start: 20240213
  3. PEMBROLIZUMAB [Suspect]
     Active Substance: PEMBROLIZUMAB
     Indication: Thymic carcinoma
     Dosage: FREQUENCY UNKNOWN
     Route: 042
     Dates: start: 20231204, end: 20231204
  4. FLUOXETINE [Concomitant]
     Active Substance: FLUOXETINE HYDROCHLORIDE
     Dates: start: 202302
  5. OLANZAPINE [Concomitant]
     Active Substance: OLANZAPINE
     Dates: start: 202310
  6. ALPRAZOLAM [Concomitant]
     Active Substance: ALPRAZOLAM
     Dates: start: 202302
  7. DOLIPRANE [Concomitant]
     Active Substance: ACETAMINOPHEN
     Dates: start: 202311
  8. MORPHINE SULFATE [Concomitant]
     Active Substance: MORPHINE SULFATE
     Dates: start: 202307
  9. LORAZEPAM [Concomitant]
     Active Substance: LORAZEPAM
     Dates: start: 202302
  10. IBUPROFEN [Concomitant]
     Active Substance: IBUPROFEN
     Dates: start: 202301

REACTIONS (6)
  - Lethargy [Recovered/Resolved]
  - Lung disorder [Recovered/Resolved]
  - Cardiac dysfunction [Recovered/Resolved]
  - Diarrhoea [Recovered/Resolved]
  - Pneumonia [Unknown]
  - Septic shock [Unknown]

NARRATIVE: CASE EVENT DATE: 20231218
